FAERS Safety Report 6982776-2 (Version None)
Quarter: 2010Q3

REPORT INFORMATION
  Report Type: 
  Country: None (occurrence: None)
  Receive Date: 20100914
  Receipt Date: 20100323
  Transmission Date: 20110219
  Serious: Yes (Other)
  Sender: FDA-Public Use
  Company Number: US-PFIZER INC-2010037958

PATIENT
  Sex: Male
  Weight: 86.62 kg

DRUGS (4)
  1. LYRICA [Suspect]
     Indication: NECK PAIN
     Dosage: 150 MG, 1X/DAY
     Route: 048
     Dates: start: 20100302
  2. CARVEDILOL [Concomitant]
     Indication: CARDIAC OPERATION
     Dosage: 6.25 MG, 2X/DAY
  3. VYTORIN [Concomitant]
     Indication: CARDIAC OPERATION
     Dosage: 10/40 MG, DAILY
  4. CALCIUM [Concomitant]
     Dosage: 600 MG, DAILY
     Route: 048

REACTIONS (2)
  - SWOLLEN TONGUE [None]
  - TONGUE PIGMENTATION [None]
